FAERS Safety Report 15965856 (Version 2)
Quarter: 2019Q1

REPORT INFORMATION
  Report Type: Spontaneous
  Country: US (occurrence: US)
  Receive Date: 20190215
  Receipt Date: 20190219
  Transmission Date: 20190418
  Serious: No
  Sender: FDA-Public Use
  Company Number: US-PFIZER INC-2019060302

PATIENT
  Age: 65 Year
  Sex: Female
  Weight: 60.33 kg

DRUGS (1)
  1. IBRANCE [Suspect]
     Active Substance: PALBOCICLIB
     Indication: NEOPLASM MALIGNANT
     Dosage: 100 MG, DAILY (DAILY FOR 21 DAYS)
     Route: 048
     Dates: start: 2017

REACTIONS (4)
  - Sinusitis [Unknown]
  - T-lymphocyte count decreased [Unknown]
  - Hypertension [Unknown]
  - Headache [Unknown]

NARRATIVE: CASE EVENT DATE: 201901
